FAERS Safety Report 6247790-3 (Version None)
Quarter: 2009Q2

REPORT INFORMATION
  Report Type: 
  Country: None (occurrence: None)
  Receive Date: 20090626
  Receipt Date: 20090616
  Transmission Date: 20091009
  Serious: Yes (Other)
  Sender: FDA-Public Use
  Company Number: US-BAYER-200822252NA

PATIENT
  Age: 57 Year
  Sex: Female
  Weight: 62 kg

DRUGS (16)
  1. AVELOX [Suspect]
     Indication: SINUSITIS
     Dosage: TOTAL DAILY DOSE: 400 MG  UNIT DOSE: 400 MG
     Route: 048
     Dates: start: 20080318, end: 20080320
  2. PLAVIX [Concomitant]
     Indication: CORONARY ARTERIAL STENT INSERTION
     Dosage: TOTAL DAILY DOSE: 75 MG  UNIT DOSE: 75 MG
     Route: 048
     Dates: start: 20050101
  3. DILTIAZEM HCL [Concomitant]
     Indication: HYPERTENSION
     Dosage: TOTAL DAILY DOSE: 180 MG  UNIT DOSE: 180 MG
     Route: 048
     Dates: start: 20000101
  4. NADOLOL [Concomitant]
     Indication: MIGRAINE
     Dosage: TOTAL DAILY DOSE: 40 MG  UNIT DOSE: 40 MG
     Route: 048
     Dates: start: 19920101
  5. EPIDRIN EXCE [Concomitant]
     Indication: MIGRAINE
     Dosage: 1-2 CAPS Q 4-6 HRS PRN
     Route: 048
     Dates: start: 20050101
  6. LIDOCAINE [Concomitant]
     Indication: MUSCULOSKELETAL PAIN
  7. FOLIC ACID [Concomitant]
  8. FLAX OIL [Concomitant]
  9. CALCIUM WITH MAGNESIUM [Concomitant]
  10. GLUCOSAMINE CHONDROITIN [Concomitant]
  11. VITAMIN B6 [Concomitant]
  12. VITAMIN C WITH ROSE HIPS [Concomitant]
  13. PROGEST BODY CREAM [Concomitant]
  14. CORGARD [Concomitant]
     Dosage: 20 OR 40 MG
  15. VASOTEC [Concomitant]
  16. TIAZAC [Concomitant]

REACTIONS (6)
  - DIZZINESS [None]
  - DIZZINESS POSTURAL [None]
  - HYPERHIDROSIS [None]
  - NAUSEA [None]
  - PALPITATIONS [None]
  - VOMITING [None]
